FAERS Safety Report 24092248 (Version 1)
Quarter: 2024Q3

REPORT INFORMATION
  Report Type: Spontaneous
  Country: US (occurrence: None)
  Receive Date: 20240714
  Receipt Date: 20240714
  Transmission Date: 20241017
  Serious: Yes (Other)
  Sender: Public
  Company Number: None

PATIENT
  Age: 56 Year
  Sex: Female
  Weight: 83.25 kg

DRUGS (1)
  1. POTASSIUM CHLORIDE [Suspect]
     Active Substance: POTASSIUM CHLORIDE
     Indication: Blood potassium decreased
     Dosage: FREQUENCY : 3 TIMES A DAY?
     Route: 048
     Dates: start: 20210730, end: 20240711

REACTIONS (4)
  - Sinus arrhythmia [None]
  - Cardiac murmur [None]
  - Aortic valve stenosis [None]
  - Heart rate irregular [None]

NARRATIVE: CASE EVENT DATE: 20240103
